FAERS Safety Report 18771271 (Version 1)
Quarter: 2021Q1

REPORT INFORMATION
  Report Type: Report from Study
  Country: IT (occurrence: IT)
  Receive Date: 20210121
  Receipt Date: 20210121
  Transmission Date: 20210419
  Serious: Yes (Death, Hospitalization)
  Sender: FDA-Public Use
  Company Number: IT-TAKEDA-2021TUS003852

PATIENT
  Age: 83 Year
  Sex: Male
  Weight: 80 kg

DRUGS (25)
  1. DELTACORTENE [Concomitant]
     Active Substance: PREDNISONE
     Indication: BACK PAIN
     Dosage: 5 MILLIGRAM, BID
     Dates: start: 20180924
  2. ADVATE [Suspect]
     Active Substance: ANTIHEMOPHILIC FACTOR, HUMAN RECOMBINANT
     Indication: PRODUCT USED FOR UNKNOWN INDICATION
     Dosage: UNK
     Route: 042
  3. ADVATE [Suspect]
     Active Substance: ANTIHEMOPHILIC FACTOR, HUMAN RECOMBINANT
     Dosage: 2000 INTERNATIONAL UNIT, SINGLE
     Route: 042
     Dates: start: 20201218, end: 20201218
  4. TRIATEC [Concomitant]
     Indication: HYPERTENSION
     Dosage: 5 MILLIGRAM, QD
     Dates: start: 20101129
  5. URSILON [Concomitant]
     Indication: CHOLELITHIASIS
     Dosage: 450 MILLIGRAM, QD
     Dates: start: 201109
  6. XATRAL [ALFUZOSIN] [Concomitant]
     Indication: PROSTATE CANCER
     Dosage: 10 MILLIGRAM, QD
     Dates: start: 200804
  7. ADVATE [Suspect]
     Active Substance: ANTIHEMOPHILIC FACTOR, HUMAN RECOMBINANT
     Dosage: 1000 INTERNATIONAL UNIT, SINGLE
     Route: 042
     Dates: start: 20201217, end: 20201217
  8. ADVATE [Suspect]
     Active Substance: ANTIHEMOPHILIC FACTOR, HUMAN RECOMBINANT
     Dosage: 3000 INTERNATIONAL UNIT, QD
     Route: 042
     Dates: start: 20201219, end: 20201222
  9. ENANTONE MONATS?DEPOT [Concomitant]
     Active Substance: LEUPROLIDE ACETATE
     Indication: PROSTATE CANCER
     Dosage: 3.75 MILLIGRAM, Q3MONTHS
     Dates: start: 200804
  10. ADVATE [Suspect]
     Active Substance: ANTIHEMOPHILIC FACTOR, HUMAN RECOMBINANT
     Dosage: 3000 INTERNATIONAL UNIT
     Route: 042
     Dates: start: 20201215
  11. ZYTIGA [Concomitant]
     Active Substance: ABIRATERONE ACETATE
     Indication: PROSTATE CANCER
     Dosage: 250 MILLIGRAM, QD
     Dates: start: 200804
  12. ADVATE [Suspect]
     Active Substance: ANTIHEMOPHILIC FACTOR, HUMAN RECOMBINANT
     Dosage: 3000 INTERNATIONAL UNIT, QD
     Route: 042
     Dates: start: 20201219, end: 20201222
  13. ADVATE [Suspect]
     Active Substance: ANTIHEMOPHILIC FACTOR, HUMAN RECOMBINANT
     Dosage: 3000 INTERNATIONAL UNIT, QD
     Route: 042
     Dates: start: 20201219, end: 20201222
  14. ADVATE [Suspect]
     Active Substance: ANTIHEMOPHILIC FACTOR, HUMAN RECOMBINANT
     Indication: PRODUCT USED FOR UNKNOWN INDICATION
     Dosage: UNK
     Route: 042
  15. ADVATE [Suspect]
     Active Substance: ANTIHEMOPHILIC FACTOR, HUMAN RECOMBINANT
     Dosage: 2000 INTERNATIONAL UNIT, SINGLE
     Route: 042
     Dates: start: 20201218, end: 20201218
  16. FLECAINIDE [Concomitant]
     Active Substance: FLECAINIDE
     Indication: HYPERTENSION
     Dosage: 100 MILLIGRAM, QD
     Dates: start: 20140924
  17. TARGIN [Concomitant]
     Active Substance: NALOXONE HYDROCHLORIDE\OXYCODONE HYDROCHLORIDE
     Indication: BACK PAIN
     Dosage: 5 MILLIGRAM, BID
     Dates: start: 20170912
  18. ADVATE [Suspect]
     Active Substance: ANTIHEMOPHILIC FACTOR, HUMAN RECOMBINANT
     Dosage: 3000 INTERNATIONAL UNIT
     Route: 042
     Dates: start: 20201215
  19. ADVATE [Suspect]
     Active Substance: ANTIHEMOPHILIC FACTOR, HUMAN RECOMBINANT
     Dosage: 1000 INTERNATIONAL UNIT, SINGLE
     Route: 042
     Dates: start: 20201217, end: 20201217
  20. ADVATE [Suspect]
     Active Substance: ANTIHEMOPHILIC FACTOR, HUMAN RECOMBINANT
     Dosage: 2000 INTERNATIONAL UNIT, SINGLE
     Route: 042
     Dates: start: 20201218, end: 20201218
  21. PANTORC [Concomitant]
     Active Substance: PANTOPRAZOLE SODIUM
     Indication: GASTRIC DISORDER
     Dosage: 40 MILLIGRAM, QD
     Dates: start: 20150409
  22. TOTALIP [Concomitant]
     Active Substance: ATORVASTATIN
     Indication: DYSLIPIDAEMIA
     Dosage: 10 MILLIGRAM, QD
     Dates: start: 20140924
  23. ADVATE [Suspect]
     Active Substance: ANTIHEMOPHILIC FACTOR, HUMAN RECOMBINANT
     Indication: PRODUCT USED FOR UNKNOWN INDICATION
     Dosage: UNK
     Route: 042
  24. ADVATE [Suspect]
     Active Substance: ANTIHEMOPHILIC FACTOR, HUMAN RECOMBINANT
     Dosage: 3000 INTERNATIONAL UNIT
     Route: 042
     Dates: start: 20201215
  25. ADVATE [Suspect]
     Active Substance: ANTIHEMOPHILIC FACTOR, HUMAN RECOMBINANT
     Dosage: 1000 INTERNATIONAL UNIT, SINGLE
     Route: 042
     Dates: start: 20201217, end: 20201217

REACTIONS (2)
  - Cachexia [Fatal]
  - Haematuria [Recovered/Resolved]

NARRATIVE: CASE EVENT DATE: 20201217
